FAERS Safety Report 8215121-5 (Version None)
Quarter: 2012Q1

REPORT INFORMATION
  Report Type: 
  Country: None (occurrence: None)
  Receive Date: 20120316
  Receipt Date: 20120313
  Transmission Date: 20120608
  Serious: Yes (Other)
  Sender: FDA-Public Use
  Company Number: US-PFIZER INC-2012066483

PATIENT
  Sex: Female
  Weight: 68.027 kg

DRUGS (4)
  1. SOMAVERT [Suspect]
     Indication: PITUITARY TUMOUR
     Dosage: ONCE DAILY
     Route: 058
     Dates: start: 20050101, end: 20090101
  2. SOMAVERT [Suspect]
     Indication: INSULIN-LIKE GROWTH FACTOR INCREASED
     Dosage: UNK
     Route: 058
     Dates: start: 20100101
  3. DIOVAN HCT [Concomitant]
     Dosage: UNK
  4. METFORMIN [Concomitant]
     Dosage: UNK

REACTIONS (1)
  - CATARACT [None]
